FAERS Safety Report 7907231-4 (Version None)
Quarter: 2011Q4

REPORT INFORMATION
  Report Type: 
  Country: None (occurrence: None)
  Receive Date: 20111109
  Receipt Date: 20111109
  Transmission Date: 20120403
  Serious: Yes (Life-Threatening, Hospitalization)
  Sender: FDA-Public Use
  Company Number: None

PATIENT
  Age: 57 Year
  Sex: Male
  Weight: 185 kg

DRUGS (2)
  1. DABIGATRAN [Suspect]
     Indication: ATRIAL FIBRILLATION
     Dosage: 150 MG BID PO
     Route: 048
     Dates: start: 20111001, end: 20111008
  2. ASPIRIN [Suspect]
     Indication: CARDIAC FAILURE CONGESTIVE
     Dosage: 81 MG EVERY DAY PO
     Route: 048

REACTIONS (6)
  - ANAEMIA [None]
  - HAEMORRHAGE [None]
  - HYPOTENSION [None]
  - PERITONEAL HAEMORRHAGE [None]
  - TACHYCARDIA [None]
  - SPLENIC HAEMORRHAGE [None]
